FAERS Safety Report 8061381-3 (Version None)
Quarter: 2012Q1

REPORT INFORMATION
  Report Type: 
  Country: None (occurrence: None)
  Receive Date: 20120120
  Receipt Date: 20111003
  Transmission Date: 20120608
  Serious: No
  Sender: FDA-Public Use
  Company Number: US-ALLERGAN-1113055US

PATIENT
  Age: 64 Year
  Sex: Female

DRUGS (1)
  1. RESTASIS [Suspect]
     Indication: LACRIMATION DECREASED
     Dosage: 1 GTT, BID
     Route: 047
     Dates: start: 20110930, end: 20111001

REACTIONS (4)
  - SINUS CONGESTION [None]
  - VISION BLURRED [None]
  - SWELLING FACE [None]
  - HEADACHE [None]
